FAERS Safety Report 14374044 (Version 2)
Quarter: 2018Q1

REPORT INFORMATION
  Report Type: Report from Study
  Country: AR (occurrence: AR)
  Receive Date: 20180111
  Receipt Date: 20180130
  Transmission Date: 20180509
  Serious: Yes (Life-Threatening, Hospitalization, Other)
  Sender: FDA-Public Use
  Company Number: AR-ROCHE-2052022

PATIENT
  Age: 49 Year
  Sex: Female

DRUGS (4)
  1. XOLAIR [Suspect]
     Active Substance: OMALIZUMAB
     Route: 065
     Dates: start: 20180108
  2. XOLAIR [Suspect]
     Active Substance: OMALIZUMAB
     Dosage: (FREQUENCY REPORTED AS 2)
     Route: 065
     Dates: start: 20171116, end: 20171116
  3. XOLAIR [Suspect]
     Active Substance: OMALIZUMAB
     Indication: ASTHMA
     Route: 065
     Dates: start: 20151112
  4. XOLAIR [Suspect]
     Active Substance: OMALIZUMAB
     Route: 065
     Dates: start: 20170629

REACTIONS (20)
  - Asthma [Recovered/Resolved]
  - Pyrexia [Recovered/Resolved]
  - Stress [Unknown]
  - Bronchospasm [Recovered/Resolved]
  - Abdominal pain [Not Recovered/Not Resolved]
  - Malaise [Recovered/Resolved]
  - Diabetes mellitus inadequate control [Unknown]
  - Gastritis [Unknown]
  - Procedural pain [Unknown]
  - Intestinal infarction [Recovering/Resolving]
  - Irritable bowel syndrome [Unknown]
  - Liver disorder [Unknown]
  - Pneumonia [Recovering/Resolving]
  - Somnolence [Recovered/Resolved]
  - Diarrhoea [Not Recovered/Not Resolved]
  - Diverticulum [Unknown]
  - Feeling abnormal [Unknown]
  - Nervousness [Unknown]
  - Mobility decreased [Unknown]
  - Hypersomnia [Unknown]

NARRATIVE: CASE EVENT DATE: 20170622
